FAERS Safety Report 18545991 (Version 5)
Quarter: 2021Q2

REPORT INFORMATION
  Report Type: Spontaneous
  Country: US (occurrence: US)
  Receive Date: 20201125
  Receipt Date: 20210505
  Transmission Date: 20210717
  Serious: No
  Sender: FDA-Public Use
  Company Number: NVSC2020US312594

PATIENT
  Age: 67 Year
  Sex: Female

DRUGS (3)
  1. MEKINIST [Suspect]
     Active Substance: TRAMETINIB DIMETHYL SULFOXIDE
     Dosage: 1 MG, QD
     Route: 048
     Dates: start: 202010
  2. MEKINIST [Suspect]
     Active Substance: TRAMETINIB DIMETHYL SULFOXIDE
     Indication: OVARIAN CANCER
     Dosage: 2 MG, QD
     Route: 048
     Dates: start: 202010
  3. MEKINIST [Suspect]
     Active Substance: TRAMETINIB DIMETHYL SULFOXIDE
     Dosage: 0.5 MG, QD
     Route: 048
     Dates: start: 20201013

REACTIONS (9)
  - Muscular weakness [Unknown]
  - Asthenia [Unknown]
  - Product use in unapproved indication [Unknown]
  - Mouth ulceration [Unknown]
  - Rash [Unknown]
  - Fatigue [Unknown]
  - Acne [Unknown]
  - Stomatitis [Unknown]
  - Onychoclasis [Unknown]

NARRATIVE: CASE EVENT DATE: 202010
